FAERS Safety Report 25022283 (Version 2)
Quarter: 2025Q3

REPORT INFORMATION
  Report Type: Spontaneous
  Country: EU (occurrence: EU)
  Receive Date: 20250228
  Receipt Date: 20250803
  Transmission Date: 20251020
  Serious: Yes (Hospitalization, Other)
  Sender: ALEXION PHARMACEUTICALS
  Company Number: EU-ASTRAZENECA-202502GLO023275SE

PATIENT
  Age: 17 Year
  Sex: Female

DRUGS (6)
  1. OMEPRAZOLE [Suspect]
     Active Substance: OMEPRAZOLE
     Dates: start: 20240601, end: 20240601
  2. LISDEXAMFETAMINE DIMESYLATE [Suspect]
     Active Substance: LISDEXAMFETAMINE DIMESYLATE
     Dates: start: 20240601, end: 20240601
  3. PROPIOMAZINE [Suspect]
     Active Substance: PROPIOMAZINE
     Route: 065
     Dates: start: 20240601, end: 20240601
  4. ATOMOXETINE HYDROCHLORIDE [Suspect]
     Active Substance: ATOMOXETINE HYDROCHLORIDE
     Route: 065
     Dates: start: 20240601, end: 20240601
  5. SERTRALINE HYDROCHLORIDE [Suspect]
     Active Substance: SERTRALINE HYDROCHLORIDE
     Route: 065
     Dates: start: 20240601, end: 20240601
  6. TRIMEPRAZINE [Suspect]
     Active Substance: TRIMEPRAZINE
     Route: 065
     Dates: start: 20240601, end: 20240601

REACTIONS (2)
  - Intentional self-injury [Unknown]
  - Intentional overdose [Unknown]

NARRATIVE: CASE EVENT DATE: 20240601
